FAERS Safety Report 21902971 (Version 1)
Quarter: 2023Q1

REPORT INFORMATION
  Report Type: Report from Study
  Country: US (occurrence: US)
  Receive Date: 20230124
  Receipt Date: 20230124
  Transmission Date: 20230417
  Serious: Yes (Hospitalization)
  Sender: FDA-Public Use
  Company Number: US-IPSEN Group, Research and Development-2023-00802

PATIENT
  Age: 14 Year
  Sex: Male
  Weight: 54.5 kg

DRUGS (11)
  1. ONIVYDE [Suspect]
     Active Substance: IRINOTECAN HYDROCHLORIDE
     Indication: Osteosarcoma
     Route: 042
     Dates: start: 20221229
  2. TALAZOPARIB [Suspect]
     Active Substance: TALAZOPARIB
     Indication: Osteosarcoma
     Route: 048
     Dates: start: 20221229
  3. TALAZOPARIB [Suspect]
     Active Substance: TALAZOPARIB
     Dosage: QD DAYS 2-6
     Route: 048
     Dates: start: 20230103
  4. DEXAMETHASONE [Concomitant]
     Active Substance: DEXAMETHASONE
     Indication: Prophylaxis
     Route: 042
     Dates: start: 20230103, end: 20230103
  5. DEXAMETHASONE [Concomitant]
     Active Substance: DEXAMETHASONE
     Route: 048
     Dates: start: 20230104, end: 20230106
  6. DICYCLOMINE [Concomitant]
     Active Substance: DICYCLOMINE HYDROCHLORIDE
     Indication: Gastrointestinal pain
     Dosage: Q6H PRN
     Route: 048
     Dates: start: 20230109
  7. FAMOTIDINE [Concomitant]
     Active Substance: FAMOTIDINE
     Indication: Prophylaxis
     Route: 048
     Dates: start: 20230103
  8. BACTRIM [Concomitant]
     Active Substance: SULFAMETHOXAZOLE\TRIMETHOPRIM
     Indication: Prophylaxis
     Dosage: BID M/T/W
     Route: 048
     Dates: start: 20230103
  9. HYOSCYAMINE [Concomitant]
     Active Substance: HYOSCYAMINE
     Indication: Gastrointestinal pain
     Dosage: Q 4H PRN
     Route: 060
     Dates: start: 20230108
  10. LOPERAMIDE [Concomitant]
     Active Substance: LOPERAMIDE
     Indication: Diarrhoea
     Dosage: Q 4H PRN
     Route: 048
     Dates: start: 20221228
  11. ONDANSETRON [Concomitant]
     Active Substance: ONDANSETRON
     Indication: Vomiting
     Dosage: Q 8H PRN
     Route: 048
     Dates: start: 20221228

REACTIONS (3)
  - Vomiting [Not Recovered/Not Resolved]
  - Product use issue [Unknown]
  - Product use in unapproved indication [Unknown]

NARRATIVE: CASE EVENT DATE: 20230108
